FAERS Safety Report 4574449-0 (Version None)
Quarter: 2005Q1

REPORT INFORMATION
  Report Type: 
  Country: None (occurrence: None)
  Receive Date: 20050204
  Receipt Date: 20050124
  Transmission Date: 20050727
  Serious: Yes (Hospitalization, Other)
  Sender: FDA-Public Use
  Company Number: 2005018470

PATIENT
  Age: 58 Year
  Sex: Female
  Weight: 78.0187 kg

DRUGS (1)
  1. BEXTRA [Suspect]
     Indication: MONARTHRITIS
     Dosage: 20 MG (20 MG, 1 IN 1 D), ORAL
     Route: 048
     Dates: start: 20010901, end: 20041001

REACTIONS (4)
  - CARDIAC DISORDER [None]
  - DYSPNOEA [None]
  - LUNG DISORDER [None]
  - RASH MACULO-PAPULAR [None]
